FAERS Safety Report 8527941 (Version 3)
Quarter: 2012Q4

REPORT INFORMATION
  Report Type: 
  Country: US (occurrence: US)
  Receive Date: 20120424
  Receipt Date: 20120903
  Transmission Date: 20130627
  Serious: Yes (Hospitalization)
  Sender: FDA-Public Use
  Company Number: US-BAYER-2012-038521

PATIENT
  Age: 27 Year
  Sex: Female
  Weight: 58.96 kg

DRUGS (10)
  1. YASMIN [Suspect]
     Indication: CONTRACEPTION
     Dosage: UNK
     Dates: start: 200112, end: 200204
  2. YASMIN [Suspect]
     Indication: MENSTRUATION IRREGULAR
  3. FLEXERIL [Concomitant]
     Indication: BACK PAIN
     Dosage: 10 mg, daily
  4. OXYCODONE [Concomitant]
     Indication: BACK PAIN
     Dosage: 5 mg, four times daily as needed
  5. PREDNISONE [Concomitant]
     Indication: BACK PAIN
     Dosage: 30 mg, daily
  6. PREDNISONE [Concomitant]
     Indication: BACK PAIN
     Dosage: 10 mg, UNK
  7. PREDNISONE [Concomitant]
     Indication: BACK PAIN
     Dosage: 50 mg, daily
  8. TYLENOL #3 [Concomitant]
     Dosage: One daily
  9. CELEBREX [Concomitant]
     Dosage: 200 mg, daily
     Route: 048
     Dates: start: 20020111
  10. ZANTAC [Concomitant]
     Dosage: 150 mg, BID
     Route: 048
     Dates: start: 20020118

REACTIONS (6)
  - Deep vein thrombosis [None]
  - Injury [None]
  - Pain [None]
  - Emotional distress [None]
  - General physical health deterioration [None]
  - Anxiety [None]
